FAERS Safety Report 4339948-5 (Version None)
Quarter: 2004Q2

REPORT INFORMATION
  Report Type: 
  Country: None (occurrence: None)
  Receive Date: 20040416
  Receipt Date: 20040406
  Transmission Date: 20050107
  Serious: Yes (Other)
  Sender: FDA-Public Use
  Company Number: GB-GLAXOSMITHKLINE-B0329261A

PATIENT
  Age: 51 Year
  Sex: Male
  Weight: 95 kg

DRUGS (2)
  1. ZYBAN [Suspect]
     Indication: EX-SMOKER
     Route: 048
     Dates: start: 20040302, end: 20040328
  2. RANITIDINE [Concomitant]
     Indication: ABDOMINAL PAIN UPPER
     Dosage: 150MG PER DAY
     Route: 048
     Dates: start: 20040224, end: 20040328

REACTIONS (4)
  - CHEILITIS [None]
  - DYSPHAGIA [None]
  - GLOSSODYNIA [None]
  - ORAL PAIN [None]
